FAERS Safety Report 10168336 (Version 3)
Quarter: 2014Q3

REPORT INFORMATION
  Report Type: Report from Study
  Country: PH (occurrence: PH)
  Receive Date: 20140512
  Receipt Date: 20140721
  Transmission Date: 20150326
  Serious: Yes (Other)
  Sender: FDA-Public Use
  Company Number: PHHY2013PH139597

PATIENT
  Age: 35 Year
  Sex: Female

DRUGS (1)
  1. GLIVEC [Suspect]
     Active Substance: IMATINIB MESYLATE
     Indication: GASTROINTESTINAL STROMAL TUMOUR
     Dosage: 400 MG
     Dates: end: 20131106

REACTIONS (2)
  - Maternal exposure during pregnancy [Unknown]
  - Foetal death [Unknown]

NARRATIVE: CASE EVENT DATE: 20140501
